FAERS Safety Report 21732547 (Version 2)
Quarter: 2022Q4

REPORT INFORMATION
  Report Type: Other
  Country: US (occurrence: None)
  Receive Date: 20221215
  Receipt Date: 20221223
  Transmission Date: 20230113
  Serious: Yes (Disabling, Other)
  Sender: FDA-Public Use
  Company Number: US-ROCHE-3045920

PATIENT
  Age: 48 Year
  Sex: Female

DRUGS (3)
  1. OCREVUS [Suspect]
     Active Substance: OCRELIZUMAB
     Indication: Relapsing-remitting multiple sclerosis
     Dosage: INFUSE 300MG INTRAVENOUSLY ON DAYS 1 AND 15 THEN INFUSE 600MG INTRAVENOUSLY EVERY 6 MONTHS, (PRESCRI
     Route: 042
     Dates: start: 20220223
  2. OCREVUS [Suspect]
     Active Substance: OCRELIZUMAB
     Dosage: NO
     Route: 065
     Dates: start: 20220120, end: 20220120
  3. PREDNISONE [Concomitant]
     Active Substance: PREDNISONE

REACTIONS (5)
  - Asthenia [Unknown]
  - Multiple sclerosis [Not Recovered/Not Resolved]
  - Infection susceptibility increased [Unknown]
  - COVID-19 [Recovered/Resolved]
  - Influenza [Recovered/Resolved]
